FAERS Safety Report 10409425 (Version 2)
Quarter: 2014Q3

REPORT INFORMATION
  Report Type: Spontaneous
  Country: US (occurrence: None)
  Receive Date: 20140530
  Receipt Date: 20140904
  Transmission Date: 20150326
  Serious: No
  Sender: FDA-Public Use
  Company Number: 227289LEO

PATIENT
  Age: 60 Year
  Sex: Female

DRUGS (1)
  1. PICATO [Suspect]
     Active Substance: INGENOL MEBUTATE
     Indication: ACTINIC KERATOSIS
     Dosage: 1 IN 1 D
     Dates: start: 20140421

REACTIONS (5)
  - Application site erythema [None]
  - Drug administered at inappropriate site [None]
  - Application site discharge [None]
  - Application site swelling [None]
  - Periorbital oedema [None]

NARRATIVE: CASE EVENT DATE: 20140422
